FAERS Safety Report 8188954-1 (Version None)
Quarter: 2012Q1

REPORT INFORMATION
  Report Type: 
  Country: None (occurrence: None)
  Receive Date: 20120306
  Receipt Date: 20120229
  Transmission Date: 20120608
  Serious: Yes (Other)
  Sender: FDA-Public Use
  Company Number: MX-BRISTOL-MYERS SQUIBB COMPANY-16425944

PATIENT
  Age: 70 Year
  Sex: Male

DRUGS (5)
  1. ROSIGLITAZONE [Concomitant]
  2. LOSARTAN POTASSIUM [Concomitant]
  3. LEVOTHYROXINE SODIUM [Concomitant]
  4. ONGLYZA [Suspect]
     Indication: DIABETES MELLITUS
     Route: 048
     Dates: start: 20100901
  5. ASPIRIN [Concomitant]

REACTIONS (1)
  - ADENOCARCINOMA PANCREAS [None]
